FAERS Safety Report 9290759 (Version 1)
Quarter: 2013Q2

REPORT INFORMATION
  Report Type: Spontaneous
  Country: CH (occurrence: CH)
  Receive Date: 20130515
  Receipt Date: 20130515
  Transmission Date: 20140414
  Serious: Yes (Hospitalization)
  Sender: FDA-Public Use
  Company Number: PHHY2013CH047067

PATIENT
  Age: 93 Year
  Sex: Female

DRUGS (7)
  1. ALLOPUR [Suspect]
     Dosage: 100 MG, QD
     Route: 048
     Dates: start: 201302, end: 20130315
  2. SINTROM [Concomitant]
     Dosage: 1 MG, UNK
  3. TORASEMIDE [Concomitant]
     Dosage: 10 MG, QD
     Route: 048
  4. VASCORD [Concomitant]
     Dosage: 1 DF, QD
     Route: 048
  5. BILOL [Concomitant]
     Dosage: 5 MG, BID
     Route: 048
  6. CIPRALEX [Concomitant]
     Dosage: 10 MG, QD
     Route: 048
  7. FENTANYL [Concomitant]
     Dosage: 25 UG, (DOSE: EVERY 3 DAYS)
     Route: 061

REACTIONS (10)
  - Cardiac failure [Recovered/Resolved]
  - Drug reaction with eosinophilia and systemic symptoms [Recovering/Resolving]
  - Vomiting [Recovered/Resolved]
  - Blood creatinine increased [Not Recovered/Not Resolved]
  - Dyspnoea [Recovered/Resolved]
  - Eosinophilia [Recovered/Resolved]
  - Rash maculo-papular [Recovered/Resolved]
  - Oedema mouth [Recovered/Resolved]
  - Pruritus [Recovered/Resolved]
  - Pyrexia [Recovered/Resolved]
